FAERS Safety Report 9698338 (Version 2)
Quarter: 2013Q4

REPORT INFORMATION
  Report Type: Spontaneous
  Country: US (occurrence: US)
  Receive Date: 20131120
  Receipt Date: 20131203
  Transmission Date: 20140711
  Serious: Yes (Other)
  Sender: FDA-Public Use
  Company Number: US-GILEAD-2013-0088177

PATIENT
  Sex: Male

DRUGS (4)
  1. LETAIRIS [Suspect]
     Indication: PULMONARY ARTERIAL HYPERTENSION
     Dosage: 10 MG, QD
     Route: 048
     Dates: start: 20120310
  2. LETAIRIS [Suspect]
     Indication: DRUG ABUSE
  3. LETAIRIS [Suspect]
     Indication: SYSTEMIC SCLEROSIS
  4. REMODULIN [Concomitant]

REACTIONS (3)
  - Enteritis infectious [Unknown]
  - Cough [Unknown]
  - Dyspnoea [Unknown]
